FAERS Safety Report 15179818 (Version 1)
Quarter: 2018Q3

REPORT INFORMATION
  Report Type: Spontaneous
  Country: GB (occurrence: GB)
  Receive Date: 20180723
  Receipt Date: 20180723
  Transmission Date: 20181010
  Serious: Yes (Other)
  Sender: FDA-Public Use
  Company Number: GB-AXELLIA-001772

PATIENT
  Age: 53 Year
  Sex: Male
  Weight: 73.1 kg

DRUGS (9)
  1. VANCOMYCIN [Suspect]
     Active Substance: VANCOMYCIN
     Indication: SOFT TISSUE INFECTION
     Route: 042
     Dates: start: 20180526, end: 20180530
  2. LANSOPRAZOLE. [Concomitant]
     Active Substance: LANSOPRAZOLE
  3. FENTANYL. [Concomitant]
     Active Substance: FENTANYL
  4. DALTEPARIN [Concomitant]
     Active Substance: DALTEPARIN
  5. GABAPENTIN. [Concomitant]
     Active Substance: GABAPENTIN
  6. NAPROXEN. [Concomitant]
     Active Substance: NAPROXEN
  7. PARACETAMOL [Concomitant]
     Active Substance: ACETAMINOPHEN
  8. ORAMORPH [Concomitant]
     Active Substance: MORPHINE SULFATE
  9. IRON [Concomitant]
     Active Substance: IRON

REACTIONS (1)
  - White blood cell count decreased [Recovered/Resolved]

NARRATIVE: CASE EVENT DATE: 20180529
